FAERS Safety Report 23234852 (Version 1)
Quarter: 2023Q4

REPORT INFORMATION
  Report Type: Spontaneous
  Country: US (occurrence: None)
  Receive Date: 20231128
  Receipt Date: 20231128
  Transmission Date: 20240110
  Serious: Yes (Hospitalization)
  Sender: FDA-Public Use
  Company Number: None

PATIENT
  Sex: Male

DRUGS (3)
  1. SIKLOS [Suspect]
     Active Substance: HYDROXYUREA
     Indication: Sickle cell disease
     Dosage: 1750MG ONCE DAILY ORAL
     Route: 048
     Dates: start: 202205
  2. OXBRYTA [Suspect]
     Active Substance: VOXELOTOR
     Indication: Sickle cell disease
     Dosage: 1500MG ONCE DAILY ORAL
     Route: 048
     Dates: start: 202208
  3. DEFERASIROX GRANULES [Concomitant]

REACTIONS (1)
  - Pneumonia [None]
